FAERS Safety Report 7711030-6 (Version None)
Quarter: 2011Q3

REPORT INFORMATION
  Report Type: 
  Country: None (occurrence: None)
  Receive Date: 20110825
  Receipt Date: 20110812
  Transmission Date: 20111222
  Serious: Yes (Hospitalization)
  Sender: FDA-Public Use
  Company Number: TR-MYLANLABS-2011S1017289

PATIENT
  Age: 70 Year
  Sex: Male

DRUGS (1)
  1. WARFARIN SODIUM [Suspect]
     Indication: ARTERIAL OCCLUSIVE DISEASE
     Dosage: 10 MG/DAY
     Route: 065

REACTIONS (3)
  - PERITONEAL HAEMORRHAGE [None]
  - HAEMATOMA [None]
  - INTESTINAL OBSTRUCTION [None]
